FAERS Safety Report 8575080-2 (Version None)
Quarter: 2012Q3

REPORT INFORMATION
  Report Type: 
  Country: None (occurrence: None)
  Receive Date: 20120807
  Receipt Date: 20120730
  Transmission Date: 20120928
  Serious: Yes (Hospitalization, Other)
  Sender: FDA-Public Use
  Company Number: IN-SANOFI-AVENTIS-2012SA054371

PATIENT
  Age: 17 Year
  Sex: Male
  Weight: 65 kg

DRUGS (1)
  1. APIDRA [Suspect]
     Indication: TYPE 1 DIABETES MELLITUS
     Dosage: 8 UNITS IN MORNING, 10 UNITS IN AFTERNOON, 4 UNITS IN EVENING AND 10 UNITS AT NIGHT
     Route: 058
     Dates: start: 20120723, end: 20120730

REACTIONS (2)
  - DRUG INEFFECTIVE [None]
  - DIABETIC KETOACIDOSIS [None]
